FAERS Safety Report 5203158-X (Version None)
Quarter: 2006Q4

REPORT INFORMATION
  Report Type: 
  Country: None (occurrence: None)
  Receive Date: 20061016
  Receipt Date: 20060227
  Transmission Date: 20070319
  Serious: Yes (Other)
  Sender: FDA-Public Use
  Company Number: 2006028638

PATIENT
  Age: 26 Year
  Sex: Female

DRUGS (7)
  1. NEURONTIN [Suspect]
     Indication: ANXIETY
  2. NEURONTIN [Suspect]
     Indication: INSOMNIA
  3. NEURONTIN [Suspect]
     Indication: PANIC ATTACK
  4. SEROQUEL [Concomitant]
  5. RESTORIL [Concomitant]
  6. VALIUM [Concomitant]
  7. RITALIN [Concomitant]

REACTIONS (5)
  - ANXIETY [None]
  - DRUG INEFFECTIVE [None]
  - HEPATIC ENZYME INCREASED [None]
  - INSOMNIA [None]
  - SUICIDE ATTEMPT [None]
